FAERS Safety Report 16159635 (Version 2)
Quarter: 2019Q2

REPORT INFORMATION
  Report Type: Spontaneous
  Country: US (occurrence: US)
  Receive Date: 20190404
  Receipt Date: 20190509
  Transmission Date: 20190711
  Serious: No
  Sender: FDA-Public Use
  Company Number: US-SA-2019SA091800

PATIENT
  Age: 52 Year
  Sex: Female
  Weight: 83 kg

DRUGS (12)
  1. VITAMIN D3 [Concomitant]
     Active Substance: CHOLECALCIFEROL
  2. ALEVE [Concomitant]
     Active Substance: NAPROXEN SODIUM
  3. B COMPLEX [VITAMIN B COMPLEX] [Concomitant]
  4. HYDROXYTRYPTOPHAN [Concomitant]
     Active Substance: OXITRIPTAN
  5. AUBAGIO [Suspect]
     Active Substance: TERIFLUNOMIDE
     Indication: MULTIPLE SCLEROSIS
     Dosage: 14 MG, QD
     Route: 048
     Dates: start: 20190212
  6. DALFAMPRIDINE. [Concomitant]
     Active Substance: DALFAMPRIDINE
  7. CALCIUM [Concomitant]
     Active Substance: CALCIUM
  8. IRON [Concomitant]
     Active Substance: IRON
  9. FISH OIL [Concomitant]
     Active Substance: FISH OIL
  10. MULTIVITAMINS [VITAMINS NOS] [Concomitant]
     Active Substance: VITAMINS
  11. PAIN RELIEF NOS [Concomitant]
     Active Substance: CAMPHOR (SYNTHETIC)\LEVOMENTHOL\MENTHYL SALICYLATE OR CAMPHOR (SYNTHETIC)\MENTHOL\MENTHYL SALICYLATE OR MENTHOL\MENTHYL SALICYLATE
  12. NALTREXONE [Concomitant]
     Active Substance: NALTREXONE

REACTIONS (4)
  - Peripheral swelling [Unknown]
  - Blood alkaline phosphatase increased [Unknown]
  - Joint swelling [Unknown]
  - Diarrhoea [Unknown]

NARRATIVE: CASE EVENT DATE: 2019
